FAERS Safety Report 7133402-3 (Version None)
Quarter: 2010Q4

REPORT INFORMATION
  Report Type: 
  Country: None (occurrence: None)
  Receive Date: 20101202
  Receipt Date: 20101129
  Transmission Date: 20110411
  Serious: Yes (Death, Other)
  Sender: FDA-Public Use
  Company Number: US-PFIZER INC-2010044707

PATIENT
  Sex: Male

DRUGS (1)
  1. SUTENT [Suspect]
     Indication: METASTATIC RENAL CELL CARCINOMA
     Dosage: 12.5 MG, 4X/DAY, X 28 DAYS EVERY 42 DAYS
     Dates: start: 20100312, end: 20100930

REACTIONS (5)
  - BLOOD PRESSURE INCREASED [None]
  - DEPRESSION [None]
  - DISEASE PROGRESSION [None]
  - METASTATIC RENAL CELL CARCINOMA [None]
  - MOOD SWINGS [None]
